FAERS Safety Report 9352742 (Version 1)
Quarter: 2013Q2

REPORT INFORMATION
  Report Type: Spontaneous
  Country: US (occurrence: None)
  Receive Date: 20130614
  Receipt Date: 20130614
  Transmission Date: 20140414
  Serious: Yes (Other)
  Sender: FDA-Public Use
  Company Number: None

PATIENT
  Age: 44 Year
  Sex: Female

DRUGS (1)
  1. HUMIRA 40 MG SQ WEEKLY ABBOTT [Suspect]
     Indication: CROHN^S DISEASE
     Dosage: 40 MG SQ WEEKLY
     Route: 058
     Dates: start: 20120502

REACTIONS (2)
  - Increased upper airway secretion [None]
  - Feeling cold [None]
